FAERS Safety Report 4900365-8 (Version None)
Quarter: 2006Q1

REPORT INFORMATION
  Report Type: 
  Country: None (occurrence: None)
  Receive Date: 20060203
  Receipt Date: 20051213
  Transmission Date: 20060701
  Serious: Yes (Hospitalization)
  Sender: FDA-Public Use
  Company Number: JP-NOVOPROD-249400

PATIENT
  Age: 59 Year
  Sex: Female
  Weight: 46 kg

DRUGS (6)
  1. NOVORAPID 30 MIX CHU FLEXPEN [Suspect]
     Indication: DIABETES MELLITUS INSULIN-DEPENDENT
     Dosage: 10-12
     Route: 058
     Dates: start: 20040611, end: 20040915
  2. EUGLUCON [Concomitant]
     Dosage: 5 UNK, UNK
     Dates: start: 20040915, end: 20050406
  3. AMITRIPTYLINE HCL [Concomitant]
  4. NOVORAPID CHU FLEXPEN [Suspect]
     Indication: DIABETES MELLITUS INSULIN-DEPENDENT
     Dosage: 24 U, UNK
     Route: 058
     Dates: start: 20040528, end: 20040915
  5. BASEN [Concomitant]
     Dosage: .6 MG, UNK
     Route: 048
     Dates: start: 20040915, end: 20050406
  6. PENFILL N CHU [Suspect]
     Indication: DIABETES MELLITUS INSULIN-DEPENDENT
     Route: 058
     Dates: start: 20040923, end: 20050715

REACTIONS (7)
  - ALLODYNIA [None]
  - BACK PAIN [None]
  - DRUG EFFECT DECREASED [None]
  - GENERALISED OEDEMA [None]
  - NEURALGIA [None]
  - PARAESTHESIA [None]
  - TREATMENT NONCOMPLIANCE [None]
